FAERS Safety Report 19702502 (Version 3)
Quarter: 2021Q3

REPORT INFORMATION
  Report Type: Spontaneous
  Country: US (occurrence: US)
  Receive Date: 20210815
  Receipt Date: 20210826
  Transmission Date: 20211014
  Serious: Yes (Hospitalization, Other)
  Sender: FDA-Public Use
  Company Number: US-GILEAD-2021-0543630

PATIENT
  Age: 63 Year
  Sex: Male

DRUGS (12)
  1. SUCRALFATE. [Concomitant]
     Active Substance: SUCRALFATE
  2. ZYRTEC [Concomitant]
     Active Substance: CETIRIZINE HYDROCHLORIDE
  3. AMOXICILLIN. [Concomitant]
     Active Substance: AMOXICILLIN
  4. OMEPRAZOLE. [Concomitant]
     Active Substance: OMEPRAZOLE
  5. PREDNISONE. [Concomitant]
     Active Substance: PREDNISONE
  6. LEVOTHYROXINE SODIUM. [Concomitant]
     Active Substance: LEVOTHYROXINE SODIUM
  7. FAMOTIDINE. [Concomitant]
     Active Substance: FAMOTIDINE
  8. VITAMIN B12 [Concomitant]
     Active Substance: CYANOCOBALAMIN
  9. SOFOSBUVIR;VELPATASVIR [Suspect]
     Active Substance: SOFOSBUVIR\VELPATASVIR
     Indication: CHRONIC HEPATITIS C
     Dosage: 1 DOSAGE FORM, QD
     Route: 048
     Dates: start: 202106
  10. GABAPENTIN. [Concomitant]
     Active Substance: GABAPENTIN
  11. LISINOPRIL. [Concomitant]
     Active Substance: LISINOPRIL
  12. ADVIL [Concomitant]
     Active Substance: IBUPROFEN

REACTIONS (4)
  - Faecaloma [Recovered/Resolved]
  - Flatulence [Recovered/Resolved]
  - Intentional dose omission [Recovered/Resolved]
  - Volvulus [Recovered/Resolved]
